FAERS Safety Report 10960524 (Version 1)
Quarter: 2015Q1

REPORT INFORMATION
  Report Type: Spontaneous
  Country: US (occurrence: None)
  Receive Date: 20150326
  Receipt Date: 20150326
  Transmission Date: 20150721
  Serious: Yes (Hospitalization)
  Sender: FDA-Public Use
  Company Number: None

PATIENT
  Age: 47 Year
  Sex: Male
  Weight: 97.07 kg

DRUGS (12)
  1. HARVONI [Suspect]
     Active Substance: LEDIPASVIR\SOFOSBUVIR
     Indication: HEPATITIS C
     Route: 048
     Dates: start: 20141230
  2. LASIX [Concomitant]
     Active Substance: FUROSEMIDE
  3. SANTAC [Concomitant]
  4. JANUVIA [Concomitant]
     Active Substance: SITAGLIPTIN PHOSPHATE
  5. KANAX [Concomitant]
  6. LISINIPRIL [Concomitant]
  7. KENALOG [Concomitant]
     Active Substance: TRIAMCINOLONE ACETONIDE
  8. LEVENIR [Concomitant]
  9. ALADACTONE [Concomitant]
  10. XIFAXAN [Concomitant]
     Active Substance: RIFAXIMIN
  11. ASPIRIN. [Concomitant]
     Active Substance: ASPIRIN
  12. LACTULOSE. [Concomitant]
     Active Substance: LACTULOSE

REACTIONS (1)
  - Hepatic encephalopathy [None]

NARRATIVE: CASE EVENT DATE: 20150131
